FAERS Safety Report 5634934-7 (Version None)
Quarter: 2008Q1

REPORT INFORMATION
  Report Type: 
  Country: None (occurrence: None)
  Receive Date: 20080221
  Receipt Date: 20080221
  Transmission Date: 20080703
  Serious: Yes (Other)
  Sender: FDA-Public Use
  Company Number: None

PATIENT
  Age: 31 Year
  Sex: Male
  Weight: 70.3075 kg

DRUGS (1)
  1. CIPRO [Suspect]
     Indication: OTITIS MEDIA
     Dosage: 750MG  2X DAY  PO
     Route: 048
     Dates: start: 20080102, end: 20080112

REACTIONS (6)
  - HEADACHE [None]
  - MUSCLE SPASMS [None]
  - MYALGIA [None]
  - PAIN IN EXTREMITY [None]
  - PAIN IN JAW [None]
  - TENDONITIS [None]
